FAERS Safety Report 8301946-4 (Version None)
Quarter: 2012Q2

REPORT INFORMATION
  Report Type: 
  Country: None (occurrence: None)
  Receive Date: 20120402
  Receipt Date: 20120326
  Transmission Date: 20120825
  Serious: Yes (Life-Threatening)
  Sender: FDA-Public Use
  Company Number: 2012031641

PATIENT
  Age: 40 Year
  Sex: Male

DRUGS (5)
  1. ALBUMINAR [Suspect]
     Dosage: (50 ML/HOUR FOR 6 HOURS INTRAVENOUS (NOT OTHERWISE SPECIFIED))
     Route: 042
  2. SPIRONOLACTONE [Concomitant]
  3. LACTULOSE [Concomitant]
  4. TOLVAPTAN(TOLVAPTAN) [Suspect]
     Indication: HYPONATRAEMIA
     Dosage: (30 MG QD ORAL)
     Route: 048
  5. FUROSEMIDE [Concomitant]

REACTIONS (1)
  - POLYURIA [None]
